FAERS Safety Report 9358767 (Version 4)
Quarter: 2015Q4

REPORT INFORMATION
  Report Type: Report from Study
  Country: DE (occurrence: DE)
  Receive Date: 20130620
  Receipt Date: 20151111
  Transmission Date: 20160305
  Serious: Yes (Hospitalization, Other)
  Sender: FDA-Public Use
  Company Number: PHHY2010DE093788

PATIENT
  Sex: Female
  Weight: 50 kg

DRUGS (6)
  1. EXJADE [Suspect]
     Active Substance: DEFERASIROX
     Dosage: 500 MG, QD
     Route: 048
     Dates: start: 20110211
  2. EXJADE [Suspect]
     Active Substance: DEFERASIROX
     Dosage: ALTERNATELY 10 TABLETS (500 MG), PER WEEK
     Route: 048
     Dates: start: 201510, end: 20151017
  3. ERYTHROCYTES [Concomitant]
     Active Substance: HUMAN RED BLOOD CELL
     Indication: PYRUVATE KINASE DEFICIENCY ANAEMIA
     Dosage: 2 U, 2-3 TIMES PER MONTH
     Route: 065
  4. EXJADE [Suspect]
     Active Substance: DEFERASIROX
     Dosage: 800 MG (2 X 400 MG), DAILY FOR 2 WEEKS, 10 TABLETS
     Route: 048
     Dates: start: 201510, end: 201510
  5. EXJADE [Suspect]
     Active Substance: DEFERASIROX
     Dosage: 500 MG, QD
     Route: 048
     Dates: start: 20151026
  6. EXJADE [Suspect]
     Active Substance: DEFERASIROX
     Indication: PYRUVATE KINASE DEFICIENCY ANAEMIA
     Dosage: 500 MG, BID
     Route: 048
     Dates: start: 20091115

REACTIONS (10)
  - Milk allergy [Unknown]
  - Pruritus [Not Recovered/Not Resolved]
  - Haemolysis [Unknown]
  - Rash [Not Recovered/Not Resolved]
  - Blood creatinine increased [Recovered/Resolved]
  - Diarrhoea [Unknown]
  - Urticaria [Not Recovered/Not Resolved]
  - Haemoglobin decreased [Unknown]
  - Infection [Unknown]
  - Eczema [Unknown]

NARRATIVE: CASE EVENT DATE: 2014
